FAERS Safety Report 16408535 (Version 2)
Quarter: 2019Q3

REPORT INFORMATION
  Report Type: Report from Study
  Country: None (occurrence: US)
  Receive Date: 20190610
  Receipt Date: 20190704
  Transmission Date: 20191004
  Serious: Yes (Death, Hospitalization)
  Sender: FDA-Public Use
  Company Number: US-ABBVIE-19K-163-2811485-00

PATIENT
  Age: 87 Year
  Sex: Female
  Weight: 60.84 kg

DRUGS (1)
  1. VENCLEXTA [Suspect]
     Active Substance: VENETOCLAX
     Indication: NON-HODGKIN^S LYMPHOMA
     Route: 048

REACTIONS (6)
  - Death [Fatal]
  - Intentional product use issue [Unknown]
  - Asthenia [Unknown]
  - Nausea [Unknown]
  - Hospice care [Unknown]
  - Fatigue [Unknown]

NARRATIVE: CASE EVENT DATE: 201906
